FAERS Safety Report 5009018-1 (Version None)
Quarter: 2006Q2

REPORT INFORMATION
  Report Type: 
  Country: None (occurrence: None)
  Receive Date: 20060519
  Receipt Date: 20060505
  Transmission Date: 20061013
  Serious: Yes (Other)
  Sender: FDA-Public Use
  Company Number: 2006040036

PATIENT
  Age: 28 Year
  Sex: Female

DRUGS (1)
  1. OPTIVAR [Suspect]
     Indication: SEASONAL ALLERGY
     Dosage: 1 GT OU BID, OPHTHALMIC
     Route: 047
     Dates: start: 20060417, end: 20060417

REACTIONS (4)
  - PHARMACEUTICAL PRODUCT COMPLAINT [None]
  - POOR QUALITY DRUG ADMINISTERED [None]
  - VISUAL ACUITY REDUCED [None]
  - VISUAL DISTURBANCE [None]
